FAERS Safety Report 10159018 (Version 1)
Quarter: 2014Q2

REPORT INFORMATION
  Report Type: Spontaneous
  Country: US (occurrence: US)
  Receive Date: 20140508
  Receipt Date: 20140508
  Transmission Date: 20141212
  Serious: No
  Sender: FDA-Public Use
  Company Number: US-BIOGENIDEC-2014BI040234

PATIENT
  Sex: Female

DRUGS (9)
  1. TECFIDERA [Suspect]
     Indication: MULTIPLE SCLEROSIS
     Route: 048
     Dates: start: 20140115
  2. CYMBALTA [Concomitant]
  3. ATENOLOL [Concomitant]
  4. GABAPENTIN [Concomitant]
  5. HYDROCHOLOROTHIAZIDE [Concomitant]
  6. TIZANIDINE HCL [Concomitant]
  7. ASPIRIN [Concomitant]
  8. VITAMIN D3 [Concomitant]
  9. VITAMIN B12 [Concomitant]

REACTIONS (4)
  - Insomnia [Not Recovered/Not Resolved]
  - Weight increased [Not Recovered/Not Resolved]
  - Hunger [Not Recovered/Not Resolved]
  - Flushing [Recovered/Resolved]
